FAERS Safety Report 8943866 (Version 3)
Quarter: 2012Q4

REPORT INFORMATION
  Report Type: 
  Country: US (occurrence: US)
  Receive Date: 20121204
  Receipt Date: 20121222
  Transmission Date: 20130627
  Serious: Yes (Hospitalization, Other)
  Sender: FDA-Public Use
  Company Number: US-PERRIGO-12US010174

PATIENT
  Age: 53 None
  Sex: Female
  Weight: 57.6 kg

DRUGS (5)
  1. LOPERAMIDE HYDROCHLORIDE 2 MG 224 [Suspect]
     Indication: DIARRHOEA
     Dosage: 4 mg, qd
     Route: 048
     Dates: start: 20121122, end: 20121123
  2. IRON [Concomitant]
     Indication: ANAEMIA
     Dosage: UNK, UNK
     Route: 048
     Dates: start: 201209
  3. IBUPROFEN [Concomitant]
     Indication: PAIN
     Dosage: UNK, UNK
     Route: 048
     Dates: start: 2005
  4. LEXAPRO [Concomitant]
     Indication: DEPRESSION
     Dosage: UNK, UNK
     Route: 048
  5. DOXYCYCLINE [Suspect]
     Indication: PRODUCT USED FOR UNKNOWN INDICATION
     Dosage: UNK, UNK
     Route: 065

REACTIONS (14)
  - Hypersensitivity [Recovered/Resolved]
  - Clostridium difficile colitis [Recovering/Resolving]
  - Haemoglobin decreased [Unknown]
  - Dysuria [Recovering/Resolving]
  - Mucous stools [Recovered/Resolved]
  - Condition aggravated [Recovering/Resolving]
  - Abdominal pain upper [Recovering/Resolving]
  - Vomiting [Recovered/Resolved]
  - Oedema peripheral [Recovered/Resolved]
  - Polyuria [Recovering/Resolving]
  - Weight decreased [Unknown]
  - Dizziness [Recovered/Resolved]
  - Drug ineffective [Unknown]
  - Abdominal rigidity [Not Recovered/Not Resolved]
